FAERS Safety Report 17563399 (Version 1)
Quarter: 2020Q1

REPORT INFORMATION
  Report Type: Spontaneous
  Country: US (occurrence: US)
  Receive Date: 20200319
  Receipt Date: 20200319
  Transmission Date: 20200409
  Serious: No
  Sender: FDA-Public Use
  Company Number: US-CATALYST PHARMACEUTICALS, INC-2020CAT00044

PATIENT
  Sex: Female
  Weight: 96.6 kg

DRUGS (5)
  1. UNSPECIFIED CHEMO PILLS [Suspect]
     Active Substance: UNSPECIFIED INGREDIENT
     Dosage: UNK
     Dates: start: 2018, end: 201808
  2. SITE CARE (EYE VITAMIN) [Concomitant]
  3. SYNBIOTIC 365 [Concomitant]
     Dosage: UNK
     Dates: start: 202001
  4. LEVOTHYROXINE. [Concomitant]
     Active Substance: LEVOTHYROXINE
  5. FIRDAPSE [Suspect]
     Active Substance: AMIFAMPRIDINE
     Indication: MYASTHENIC SYNDROME
     Dosage: 20 MG, 2X/DAY
     Route: 048
     Dates: start: 2017

REACTIONS (1)
  - Diarrhoea [Not Recovered/Not Resolved]

NARRATIVE: CASE EVENT DATE: 2018
